FAERS Safety Report 9670262 (Version 3)
Quarter: 2013Q4

REPORT INFORMATION
  Report Type: Report from Study
  Country: FR (occurrence: FR)
  Receive Date: 20131105
  Receipt Date: 20131122
  Transmission Date: 20140711
  Serious: Yes (Death, Hospitalization)
  Sender: FDA-Public Use
  Company Number: FR-EXELIXIS-XL18413003461

PATIENT
  Age: 63 Year
  Sex: Male
  Weight: 83 kg

DRUGS (7)
  1. XL184 [Suspect]
     Indication: PROSTATE CANCER
     Dosage: 60 MG, QD
     Route: 048
     Dates: start: 20121206
  2. XL184 [Suspect]
     Dosage: 20 MG, QD
     Route: 048
     Dates: end: 20131009
  3. XL184 [Suspect]
     Indication: PROSTATE CANCER
     Dosage: 5 MG, BID
     Route: 048
     Dates: start: 20121206, end: 20131010
  4. MOPRAL [Concomitant]
  5. OXYCONTIN [Concomitant]
  6. OXYNORM [Concomitant]
  7. CORTANCYL [Concomitant]

REACTIONS (5)
  - Subdural haematoma [Not Recovered/Not Resolved]
  - Disease progression [Fatal]
  - General physical health deterioration [Not Recovered/Not Resolved]
  - Thrombocytopenia [Not Recovered/Not Resolved]
  - Anaemia [Not Recovered/Not Resolved]
